FAERS Safety Report 9289731 (Version 2)
Quarter: 2013Q2

REPORT INFORMATION
  Report Type: Spontaneous
  Country: US (occurrence: US)
  Receive Date: 20130515
  Receipt Date: 20130521
  Transmission Date: 20140414
  Serious: No
  Sender: FDA-Public Use
  Company Number: US-BIOGENIDEC-2013BI042791

PATIENT
  Age: 55 Year
  Sex: Male

DRUGS (1)
  1. TYSABRI [Suspect]
     Indication: MULTIPLE SCLEROSIS
     Route: 042
     Dates: start: 20130201

REACTIONS (6)
  - Balance disorder [Unknown]
  - Inner ear disorder [Unknown]
  - Vertigo [Unknown]
  - General symptom [Unknown]
  - Hypoacusis [Unknown]
  - Labyrinthitis [Not Recovered/Not Resolved]
